FAERS Safety Report 19192502 (Version 6)
Quarter: 2021Q2

REPORT INFORMATION
  Report Type: Spontaneous
  Country: US (occurrence: US)
  Receive Date: 20210429
  Receipt Date: 20210605
  Transmission Date: 20210717
  Serious: No
  Sender: FDA-Public Use
  Company Number: US-UNITED THERAPEUTICS-UNT-2021-007197

PATIENT
  Age: 66 Year
  Sex: Female
  Weight: 78.01 kg

DRUGS (6)
  1. REMODULIN [Suspect]
     Active Substance: TREPROSTINIL
     Dosage: 0.002 ?G/KG, CONTINUING
     Route: 058
     Dates: start: 202104, end: 20210419
  2. ADEMPAS [Suspect]
     Active Substance: RIOCIGUAT
     Dosage: 2 MG
     Route: 065
     Dates: start: 20210527
  3. REMODULIN [Suspect]
     Active Substance: TREPROSTINIL
     Dosage: 0.016 ?G/KG, CONTINUING
     Route: 058
  4. REMODULIN [Suspect]
     Active Substance: TREPROSTINIL
     Indication: PULMONARY ARTERIAL HYPERTENSION
     Dosage: UNK, CONTINUING
     Route: 058
     Dates: start: 20210414
  5. REMODULIN [Suspect]
     Active Substance: TREPROSTINIL
     Dosage: 0.004 ?G/KG, CONTINUING
     Route: 058
     Dates: start: 20210419
  6. ADEMPAS [Suspect]
     Active Substance: RIOCIGUAT
     Indication: PRODUCT USED FOR UNKNOWN INDICATION
     Dosage: 1 MG
     Route: 065

REACTIONS (11)
  - Dizziness [Recovered/Resolved]
  - Pain [Unknown]
  - Back pain [Recovered/Resolved]
  - Feeling hot [Recovered/Resolved]
  - Palpitations [Recovered/Resolved]
  - Blood pressure decreased [Unknown]
  - Diarrhoea [Unknown]
  - Myalgia [Recovered/Resolved]
  - Fall [Recovered/Resolved]
  - Pain in extremity [Unknown]
  - Dyspepsia [Unknown]

NARRATIVE: CASE EVENT DATE: 202104
